FAERS Safety Report 20835882 (Version 2)
Quarter: 2022Q2

REPORT INFORMATION
  Report Type: Spontaneous
  Country: US (occurrence: US)
  Receive Date: 20220516
  Receipt Date: 20220607
  Transmission Date: 20220721
  Serious: Yes (Other)
  Sender: FDA-Public Use
  Company Number: US-Teikoku Pharma USA-TPU2022-00491

PATIENT
  Age: 79 Year
  Sex: Male
  Weight: 113.50 kg

DRUGS (3)
  1. LIDOCAINE PATCH [Suspect]
     Active Substance: LIDOCAINE
     Indication: Back pain
     Route: 061
  2. LIDOCAINE PATCH [Suspect]
     Active Substance: LIDOCAINE
     Route: 061
     Dates: start: 202204
  3. LIDOCAINE [Suspect]
     Active Substance: LIDOCAINE
     Indication: Back pain
     Route: 061
     Dates: start: 202204

REACTIONS (8)
  - Drug effect less than expected [Unknown]
  - Incorrect product administration duration [Unknown]
  - Application site erythema [Unknown]
  - Application site vesicles [Unknown]
  - Suicidal ideation [Unknown]
  - Product confusion [Unknown]
  - Product availability issue [Not Recovered/Not Resolved]
  - Staphylococcal infection [Unknown]

NARRATIVE: CASE EVENT DATE: 20220501
